FAERS Safety Report 4712176-7 (Version None)
Quarter: 2005Q3

REPORT INFORMATION
  Report Type: 
  Country: None (occurrence: None)
  Receive Date: 20050712
  Receipt Date: 20050704
  Transmission Date: 20060218
  Serious: Yes (Hospitalization)
  Sender: FDA-Public Use
  Company Number: US-ROCHE-409563

PATIENT
  Age: 53 Year
  Sex: Male
  Weight: 86.5 kg

DRUGS (15)
  1. PEG-INTERFERON ALFA 2A (RO 25-8310) [Suspect]
     Route: 058
     Dates: start: 20050427, end: 20050525
  2. PEG-INTERFERON ALFA 2A (RO 25-8310) [Suspect]
     Route: 058
     Dates: start: 20050601
  3. RIBAVIRIN [Suspect]
     Route: 048
     Dates: start: 20050427
  4. ATENOLOL [Concomitant]
     Dates: start: 20020615
  5. PREVACID [Concomitant]
     Dates: start: 20040615
  6. PHOSLO [Concomitant]
     Dates: start: 20040615
  7. DARVOCET-N 100 [Concomitant]
     Dates: start: 20030615
  8. ALPRAZOLAM [Concomitant]
     Dates: start: 20020615
  9. EPOGEN [Concomitant]
     Dates: start: 20040615
  10. TUMS [Concomitant]
     Dates: start: 20040615
  11. HEPARIN [Concomitant]
     Dates: start: 20040615
  12. ZOLOFT [Concomitant]
     Dates: start: 20050504
  13. IMODIUM [Concomitant]
     Dates: start: 20050504
  14. ZANTAC [Concomitant]
     Dates: start: 20050509
  15. TYLENOL PM [Concomitant]
     Dates: start: 20050505

REACTIONS (2)
  - CATHETER RELATED COMPLICATION [None]
  - PERITONITIS [None]
